FAERS Safety Report 5697580-5 (Version None)
Quarter: 2008Q2

REPORT INFORMATION
  Report Type: 
  Country: None (occurrence: None)
  Receive Date: 20080408
  Receipt Date: 20080402
  Transmission Date: 20081010
  Serious: Yes (Disabling, Other)
  Sender: FDA-Public Use
  Company Number: US-JNJFOC-20080401119

PATIENT
  Age: 52 Year
  Sex: Female
  Weight: 104.33 kg

DRUGS (7)
  1. LEVAQUIN [Suspect]
     Route: 048
  2. LEVAQUIN [Suspect]
     Indication: BRONCHOPNEUMONIA
     Route: 048
  3. CYMBALTA [Concomitant]
     Indication: NEUROPATHY PERIPHERAL
     Route: 065
  4. NEURONTIN [Concomitant]
     Indication: PAIN
     Route: 065
  5. SINGULAIR [Concomitant]
     Indication: ASTHMA
     Route: 065
  6. THYROID TAB [Concomitant]
     Indication: HYPOTHYROIDISM
     Route: 065
  7. HERBAL SUPPLEMENTS [Concomitant]
     Route: 065

REACTIONS (1)
  - FIBROMYALGIA [None]
